FAERS Safety Report 6888321-4 (Version None)
Quarter: 2010Q3

REPORT INFORMATION
  Report Type: 
  Country: None (occurrence: None)
  Receive Date: 20100730
  Receipt Date: 20100727
  Transmission Date: 20110219
  Serious: Yes (Death)
  Sender: FDA-Public Use
  Company Number: US-BAXTER-2010BH014392

PATIENT
  Age: 77 Year
  Sex: Male

DRUGS (1)
  1. DIANEAL [Suspect]
     Indication: PERITONEAL DIALYSIS
     Route: 033
     Dates: start: 20091001, end: 20100604

REACTIONS (1)
  - LUNG NEOPLASM MALIGNANT [None]
